FAERS Safety Report 9135286 (Version 1)
Quarter: 2013Q1

REPORT INFORMATION
  Report Type: Spontaneous
  Country: US (occurrence: US)
  Receive Date: 20130304
  Receipt Date: 20130304
  Transmission Date: 20140127
  Serious: No
  Sender: FDA-Public Use
  Company Number: US-COVIDIEN/TYCO HEALTHCARE/MALLINCKRODT-T201300800

PATIENT
  Age: 86 Year
  Sex: Female

DRUGS (3)
  1. TEMAZEPAM [Suspect]
     Indication: INSOMNIA
     Dosage: 7.5 MG, AT NIGHT
     Route: 048
     Dates: start: 201206
  2. LISINOPRIL [Concomitant]
     Indication: HYPERTENSION
     Dosage: UNK
  3. ALLOPURINOL [Concomitant]
     Indication: GOUT
     Dosage: UNK

REACTIONS (1)
  - Nail growth abnormal [Not Recovered/Not Resolved]
